FAERS Safety Report 8197261-2 (Version None)
Quarter: 2012Q1

REPORT INFORMATION
  Report Type: 
  Country: None (occurrence: None)
  Receive Date: 20120309
  Receipt Date: 20120229
  Transmission Date: 20120608
  Serious: Yes (Hospitalization)
  Sender: FDA-Public Use
  Company Number: FR-PFIZER INC-2012048963

PATIENT
  Age: 73 Year
  Sex: Male

DRUGS (4)
  1. ELOXATIN [Suspect]
     Indication: METASTASES TO LIVER
     Dosage: 42 MG/M2, ONCE EVERY 2 WEEKS
     Route: 013
     Dates: start: 20120128, end: 20120129
  2. ERBITUX [Suspect]
     Indication: METASTASES TO LIVER
     Dosage: 500 MG/M2, ONCE EVERY 2 WEEKS
     Route: 042
     Dates: start: 20120127, end: 20120127
  3. FLUOROURACIL [Suspect]
     Indication: METASTASES TO LIVER
     Dosage: 1000 MG/M2, ONCE EVERY 2 WEEKS
     Route: 013
     Dates: start: 20120128
  4. IRINOTECAN HCL [Suspect]
     Indication: METASTASES TO LIVER
     Dosage: 150 MG/M2, ONCE EVERY 2 WEEKS
     Route: 013
     Dates: start: 20120128, end: 20120128

REACTIONS (2)
  - HYPERTENSION [None]
  - ABDOMINAL PAIN [None]
